FAERS Safety Report 17909368 (Version 1)
Quarter: 2020Q2

REPORT INFORMATION
  Report Type: Spontaneous
  Country: FR (occurrence: FR)
  Receive Date: 20200618
  Receipt Date: 20200618
  Transmission Date: 20200714
  Serious: Yes (Hospitalization, Other)
  Sender: FDA-Public Use
  Company Number: FR-SUN PHARMACEUTICAL INDUSTRIES LTD-2020RR-250762

PATIENT
  Age: 73 Year
  Sex: Female
  Weight: 62 kg

DRUGS (1)
  1. ATORVASTATINE [Suspect]
     Active Substance: ATORVASTATIN
     Indication: PROPHYLAXIS
     Dosage: 80 MILLIGRAM
     Route: 048
     Dates: start: 2018, end: 20200131

REACTIONS (1)
  - Necrotising myositis [Recovered/Resolved]

NARRATIVE: CASE EVENT DATE: 20200129
